FAERS Safety Report 24230199 (Version 2)
Quarter: 2024Q3

REPORT INFORMATION
  Report Type: Report from Study
  Country: US (occurrence: US)
  Receive Date: 20240820
  Receipt Date: 20240823
  Transmission Date: 20241016
  Serious: Yes (Other)
  Sender: ABBVIE
  Company Number: US-ABBVIE-5881347

PATIENT
  Sex: Female

DRUGS (1)
  1. HUMIRA [Suspect]
     Active Substance: ADALIMUMAB
     Indication: Rheumatoid arthritis
     Route: 058
     Dates: start: 20240307

REACTIONS (8)
  - Intestinal perforation [Recovering/Resolving]
  - Surgery [Unknown]
  - Drug ineffective [Recovering/Resolving]
  - Rheumatoid arthritis [Unknown]
  - Arthralgia [Recovering/Resolving]
  - Arthritis [Recovering/Resolving]
  - Dysstasia [Unknown]
  - Helplessness [Unknown]

NARRATIVE: CASE EVENT DATE: 20240101
